FAERS Safety Report 23480674 (Version 1)
Quarter: 2024Q1

REPORT INFORMATION
  Report Type: Spontaneous
  Country: US (occurrence: US)
  Receive Date: 20240205
  Receipt Date: 20240205
  Transmission Date: 20240410
  Serious: No
  Sender: FDA-Public Use
  Company Number: US-BIOVITRUM-2024-US-001582

PATIENT
  Age: 5 Year
  Sex: Female

DRUGS (3)
  1. EMAPALUMAB [Suspect]
     Active Substance: EMAPALUMAB
     Indication: Ill-defined disorder
     Dosage: 3 MG/KG ONCE EVERY 2 WEEKS
  2. EMAPALUMAB [Suspect]
     Active Substance: EMAPALUMAB
     Indication: Inflammation
  3. EMAPALUMAB [Suspect]
     Active Substance: EMAPALUMAB
     Indication: Stem cell therapy

REACTIONS (3)
  - Tachycardia [Unknown]
  - Pyrexia [Unknown]
  - Off label use [Unknown]
